FAERS Safety Report 8602369-0 (Version None)
Quarter: 2012Q3

REPORT INFORMATION
  Report Type: 
  Country: None (occurrence: None)
  Receive Date: 20120817
  Receipt Date: 19940125
  Transmission Date: 20120928
  Serious: Yes (Other)
  Sender: FDA-Public Use
  Company Number: US-ROCHE-1101410

PATIENT
  Sex: Female

DRUGS (2)
  1. LOPRESSOR [Concomitant]
  2. ACTIVASE [Suspect]
     Indication: ACUTE MYOCARDIAL INFARCTION

REACTIONS (5)
  - DYSURIA [None]
  - ANGINA PECTORIS [None]
  - HYPOTENSION [None]
  - COSTOCHONDRITIS [None]
  - HEADACHE [None]
